FAERS Safety Report 20712948 (Version 1)
Quarter: 2022Q2

REPORT INFORMATION
  Report Type: Spontaneous
  Country: HR (occurrence: HR)
  Receive Date: 20220415
  Receipt Date: 20220415
  Transmission Date: 20220721
  Serious: Yes (Other)
  Sender: FDA-Public Use
  Company Number: None

PATIENT
  Age: 12 Year
  Sex: Female
  Weight: 50 kg

DRUGS (3)
  1. IBUPROFEN [Suspect]
     Active Substance: IBUPROFEN
     Dosage: UNIT DOSE: 1600 MG, FREQUENCY TIME- 1 DAY, DURATION-1 DAYS
     Route: 048
     Dates: start: 20220119, end: 20220119
  2. NORMABEL [Suspect]
     Active Substance: DIAZEPAM
     Dosage: UNIT DOSE: 60 MG, FREQUENCY TIME- 1 DAY, DURATION-1 DAYS
     Route: 048
     Dates: start: 20220119, end: 20220119
  3. CONTROLOC [Suspect]
     Active Substance: PANTOPRAZOLE SODIUM
     Dosage: UNIT DOSE: 4 DF, FREQUENCY TIME- 1 DAY, DURATION-1 DAYS
     Route: 048
     Dates: start: 20220119, end: 20220119

REACTIONS (2)
  - Suicide attempt [Unknown]
  - No adverse event [Unknown]

NARRATIVE: CASE EVENT DATE: 20220119
